FAERS Safety Report 6635094-6 (Version None)
Quarter: 2010Q1

REPORT INFORMATION
  Report Type: 
  Country: None (occurrence: None)
  Receive Date: 20100315
  Receipt Date: 20100303
  Transmission Date: 20100710
  Serious: Yes (Hospitalization)
  Sender: FDA-Public Use
  Company Number: PHHY2010JP12866

PATIENT
  Sex: Male

DRUGS (3)
  1. TASIGNA [Suspect]
     Indication: CHRONIC MYELOID LEUKAEMIA
     Dosage: 800 MG DAILY
     Route: 048
     Dates: start: 20091120
  2. GASTER [Concomitant]
     Indication: REFLUX OESOPHAGITIS
     Dosage: 40 MG, UNK
     Route: 048
     Dates: start: 20091119
  3. GASLON [Concomitant]
     Indication: REFLUX OESOPHAGITIS
     Dosage: 4 MG, UNK
     Route: 048
     Dates: start: 20090101

REACTIONS (2)
  - BILE DUCT STONE [None]
  - CHOLEDOCHOLITHOTOMY [None]
